FAERS Safety Report 23632733 (Version 1)
Quarter: 2024Q1

REPORT INFORMATION
  Report Type: Report from Study
  Country: US (occurrence: US)
  Receive Date: 20240314
  Receipt Date: 20240314
  Transmission Date: 20240410
  Serious: Yes (Hospitalization, Other)
  Sender: FDA-Public Use
  Company Number: US-ARGENX-2023-ARGX-US002013

PATIENT

DRUGS (2)
  1. VYVGART [Suspect]
     Active Substance: EFGARTIGIMOD ALFA-FCAB
     Indication: Myasthenia gravis
     Dosage: 770 MG, WEEKLY FOR 4 WEEKS
     Route: 042
     Dates: start: 202303
  2. VYVGART [Suspect]
     Active Substance: EFGARTIGIMOD ALFA-FCAB
     Dosage: 740 MG, 1/WEEK, STRENGTH 400MG/20ML
     Route: 042
     Dates: start: 20230331

REACTIONS (5)
  - Pneumonia [Unknown]
  - Myasthenia gravis [Unknown]
  - Dyspnoea [Unknown]
  - Hypertension [Unknown]
  - Asthenia [Unknown]

NARRATIVE: CASE EVENT DATE: 20231108
